FAERS Safety Report 7973929-5 (Version None)
Quarter: 2011Q4

REPORT INFORMATION
  Report Type: 
  Country: None (occurrence: None)
  Receive Date: 20111213
  Receipt Date: 20111206
  Transmission Date: 20120403
  Serious: Yes (Hospitalization)
  Sender: FDA-Public Use
  Company Number: FR-UCBSA-047225

PATIENT
  Sex: Female

DRUGS (2)
  1. CORTICOIDS [Concomitant]
     Route: 048
  2. CIMZIA [Suspect]
     Indication: RHEUMATOID ARTHRITIS
     Route: 058
     Dates: start: 20101201, end: 20111201

REACTIONS (2)
  - ERYSIPELAS [None]
  - CELLULITIS [None]
